FAERS Safety Report 20562293 (Version 1)
Quarter: 2022Q1

REPORT INFORMATION
  Report Type: Spontaneous
  Country: GB (occurrence: GB)
  Receive Date: 20220307
  Receipt Date: 20220307
  Transmission Date: 20220423
  Serious: Yes (Hospitalization, Other)
  Sender: FDA-Public Use
  Company Number: GB-ABBVIE-22K-167-4302226-00

PATIENT
  Age: 59 Year
  Sex: Male

DRUGS (13)
  1. DIVALPROEX SODIUM [Suspect]
     Active Substance: DIVALPROEX SODIUM
     Indication: Seizure prophylaxis
     Route: 065
  2. CLOZAPINE [Suspect]
     Active Substance: CLOZAPINE
     Indication: Schizophrenia
     Route: 030
  3. CLOZAPINE [Suspect]
     Active Substance: CLOZAPINE
     Route: 065
     Dates: start: 20011119, end: 20041003
  4. CLOZAPINE [Suspect]
     Active Substance: CLOZAPINE
     Route: 065
     Dates: start: 20050912, end: 20160216
  5. CLOZAPINE [Suspect]
     Active Substance: CLOZAPINE
     Dosage: TITRATION WAS RESTARTED
     Route: 048
  6. CLOZAPINE [Suspect]
     Active Substance: CLOZAPINE
     Dosage: TITRATION WAS RESTARTED
     Route: 048
     Dates: start: 20160217, end: 201901
  7. CLOZAPINE [Suspect]
     Active Substance: CLOZAPINE
     Dosage: LESS THAN 100 MG DAILY?TITRATION WAS RESTARTED
     Route: 048
     Dates: start: 201903
  8. CLOZAPINE [Suspect]
     Active Substance: CLOZAPINE
     Dosage: LESS THAN 100 MG DAILY
     Route: 048
     Dates: start: 20041004
  9. CLOZAPINE [Suspect]
     Active Substance: CLOZAPINE
     Route: 048
     Dates: start: 20041004, end: 20050911
  10. CLOZAPINE [Suspect]
     Active Substance: CLOZAPINE
     Dosage: TITRATION WAS RESTARTED
     Route: 048
     Dates: start: 20190228, end: 201903
  11. CLOZAPINE [Suspect]
     Active Substance: CLOZAPINE
     Dosage: TITRATION WAS RESTARTED
     Route: 048
     Dates: start: 20190326
  12. ZUCLOPENTHIXOL HYDROCHLORIDE [Suspect]
     Active Substance: ZUCLOPENTHIXOL HYDROCHLORIDE
     Indication: Product used for unknown indication
     Route: 065
  13. OLANZAPINE [Concomitant]
     Active Substance: OLANZAPINE
     Indication: Product used for unknown indication

REACTIONS (3)
  - Generalised tonic-clonic seizure [Recovered/Resolved]
  - Liver function test abnormal [Unknown]
  - Vomiting [Recovered/Resolved]

NARRATIVE: CASE EVENT DATE: 20190316
